FAERS Safety Report 23388863 (Version 1)
Quarter: 2024Q1

REPORT INFORMATION
  Report Type: Spontaneous
  Country: FR (occurrence: FR)
  Receive Date: 20240110
  Receipt Date: 20240110
  Transmission Date: 20240409
  Serious: Yes (Hospitalization)
  Sender: FDA-Public Use
  Company Number: None

PATIENT
  Age: 63 Year
  Sex: Male
  Weight: 70.5 kg

DRUGS (16)
  1. DEXAMETHASONE [Suspect]
     Active Substance: DEXAMETHASONE
     Indication: Meningitis
     Route: 042
     Dates: start: 20230930, end: 20231002
  2. ACYCLOVIR [Suspect]
     Active Substance: ACYCLOVIR
     Indication: Meningitis
     Route: 042
     Dates: start: 20230930, end: 20231002
  3. GENTAMICIN [Suspect]
     Active Substance: GENTAMICIN
     Indication: Meningitis
     Route: 042
     Dates: start: 20230930, end: 20231002
  4. SPIRAMYCIN ADIPATE [Suspect]
     Active Substance: SPIRAMYCIN ADIPATE
     Indication: Pneumonia
     Dosage: ROVAMYCIN 1.5 MILLION INTERNATIONAL UNITS, LYOPHILISATE FOR PARENTERAL USE
     Route: 042
     Dates: start: 20231002, end: 20231003
  5. CEFTRIAXONE [Suspect]
     Active Substance: CEFTRIAXONE\CEFTRIAXONE SODIUM
     Indication: Meningitis
     Dosage: CEFTRIAXONE BASE
     Route: 042
     Dates: start: 20230930, end: 20231002
  6. CEFOTAXIME [Suspect]
     Active Substance: CEFOTAXIME SODIUM
     Indication: Pneumonia
     Dosage: CEFOTAXIME BASE
     Route: 042
     Dates: start: 20231002, end: 20231006
  7. MEROPENEM ANHYDROUS [Suspect]
     Active Substance: MEROPENEM ANHYDROUS
     Indication: Pneumonia
     Dosage: MEROPENEM ANHYDRE
     Route: 042
     Dates: start: 20231015, end: 20231023
  8. AMIKACIN [Suspect]
     Active Substance: AMIKACIN
     Indication: Pneumonia
     Route: 040
     Dates: start: 20231008, end: 20231008
  9. TAZOBACTAM [Suspect]
     Active Substance: TAZOBACTAM
     Indication: Pneumonia
     Route: 042
     Dates: start: 20231008, end: 20231015
  10. PIPERACILLIN [Suspect]
     Active Substance: PIPERACILLIN
     Indication: Pneumonia
     Dosage: PIPERACILLINE BASE
     Route: 042
     Dates: start: 20231008, end: 20231015
  11. AMOXICILLIN [Suspect]
     Active Substance: AMOXICILLIN
     Indication: Meningitis
     Route: 040
     Dates: start: 20230930, end: 20231002
  12. ALFENTANIL [Concomitant]
     Active Substance: ALFENTANIL
     Indication: Product used for unknown indication
  13. FENTANYL [Concomitant]
     Active Substance: FENTANYL\FENTANYL CITRATE
     Indication: Product used for unknown indication
  14. OXAZEPAM [Concomitant]
     Active Substance: OXAZEPAM
     Indication: Product used for unknown indication
  15. ACETAMINOPHEN [Concomitant]
     Active Substance: ACETAMINOPHEN
     Indication: Product used for unknown indication
  16. MIANSERIN HYDROCHLORIDE [Concomitant]
     Active Substance: MIANSERIN HYDROCHLORIDE
     Indication: Product used for unknown indication
     Dosage: CHLORHYDRATE DE MIANSERINE

REACTIONS (1)
  - Clostridium difficile colitis [Recovered/Resolved]

NARRATIVE: CASE EVENT DATE: 20231016
